FAERS Safety Report 5346710-3 (Version None)
Quarter: 2007Q2

REPORT INFORMATION
  Report Type: 
  Country: None (occurrence: None)
  Receive Date: 20070605
  Receipt Date: 20070525
  Transmission Date: 20071010
  Serious: Yes (Other)
  Sender: FDA-Public Use
  Company Number: US-PFIZER INC-2007042972

PATIENT

DRUGS (1)
  1. GEODON [Suspect]
     Dosage: DAILY DOSE:160MG

REACTIONS (1)
  - HALLUCINATION, AUDITORY [None]
